FAERS Safety Report 10017348 (Version 7)
Quarter: 2016Q3

REPORT INFORMATION
  Report Type: Spontaneous
  Country: US (occurrence: US)
  Receive Date: 20140318
  Receipt Date: 20160813
  Transmission Date: 20161108
  Serious: Yes (Hospitalization, Disabling, Other)
  Sender: FDA-Public Use
  Company Number: US-009507513-1403USA004517

PATIENT
  Sex: Female
  Weight: 66.21 kg

DRUGS (6)
  1. FOSAMAX [Suspect]
     Active Substance: ALENDRONATE SODIUM
     Indication: OSTEOPOROSIS
     Dosage: 70 MG, QW
     Route: 048
     Dates: start: 2006, end: 20090711
  2. ALENDRONATE SODIUM. [Suspect]
     Active Substance: ALENDRONATE SODIUM
     Dosage: UNK, UNKNOWN
     Route: 048
     Dates: start: 20110916
  3. VITAMINS (UNSPECIFIED) [Concomitant]
     Active Substance: VITAMINS
     Dosage: UNK
     Route: 065
     Dates: start: 2004
  4. FOSAMAX [Suspect]
     Active Substance: ALENDRONATE SODIUM
     Dosage: 70 MG, QM
     Route: 048
  5. ALENDRONATE SODIUM. [Suspect]
     Active Substance: ALENDRONATE SODIUM
     Indication: OSTEOPOROSIS
     Dosage: 70 MG, QW
     Route: 048
     Dates: start: 20090618, end: 201102
  6. FOSAMAX [Suspect]
     Active Substance: ALENDRONATE SODIUM
     Dosage: 35 MG, UNK
     Route: 048
     Dates: start: 20110916

REACTIONS (21)
  - Fibula fracture [Unknown]
  - Fracture nonunion [Unknown]
  - Arthritis [Unknown]
  - Limb injury [Not Recovered/Not Resolved]
  - Hyperlipidaemia [Unknown]
  - Inflammation [Unknown]
  - Carpal tunnel syndrome [Unknown]
  - Coronary artery disease [Unknown]
  - Type 2 diabetes mellitus [Unknown]
  - Asthma [Unknown]
  - Tibia fracture [Recovered/Resolved]
  - Carotid endarterectomy [Unknown]
  - Essential hypertension [Unknown]
  - Chronic obstructive pulmonary disease [Unknown]
  - Breast cyst [Unknown]
  - Femur fracture [Unknown]
  - Inappropriate schedule of drug administration [Unknown]
  - Limb injury [Not Recovered/Not Resolved]
  - Hernia [Unknown]
  - Osteopenia [Unknown]
  - Arthralgia [Not Recovered/Not Resolved]

NARRATIVE: CASE EVENT DATE: 2008
